FAERS Safety Report 8327700-5 (Version None)
Quarter: 2012Q2

REPORT INFORMATION
  Report Type: 
  Country: None (occurrence: None)
  Receive Date: 20120502
  Receipt Date: 20120430
  Transmission Date: 20120825
  Serious: No
  Sender: FDA-Public Use
  Company Number: US-PFIZER INC-2012106735

PATIENT
  Sex: Female
  Weight: 40.363 kg

DRUGS (1)
  1. LYRICA [Suspect]
     Indication: FIBROMYALGIA
     Dosage: 100 MG, 3X/DAY
     Dates: start: 20120201, end: 20120425

REACTIONS (3)
  - WEIGHT INCREASED [None]
  - PAIN [None]
  - INSOMNIA [None]
